FAERS Safety Report 15459699 (Version 2)
Quarter: 2018Q4

REPORT INFORMATION
  Report Type: Spontaneous
  Country: US (occurrence: US)
  Receive Date: 20181003
  Receipt Date: 20181202
  Transmission Date: 20190204
  Serious: Yes (Other)
  Sender: FDA-Public Use
  Company Number: US-009507513-1809USA011411

PATIENT
  Sex: Male

DRUGS (3)
  1. BGJ398 [Suspect]
     Active Substance: INFIGRATINIB
     Indication: GLIOBLASTOMA
     Dosage: QUANTITY: 21 WITH THREE REFILLS
  2. TEMOZOLOMIDE. [Suspect]
     Active Substance: TEMOZOLOMIDE
     Indication: GLIOBLASTOMA
     Dosage: 6 CYCLES
     Dates: end: 20180129
  3. TEMOZOLOMIDE. [Suspect]
     Active Substance: TEMOZOLOMIDE
     Dosage: UNK (METRONOMIC TEMOZOLOMIDE)
     Dates: start: 20180312

REACTIONS (1)
  - Glioblastoma [Unknown]

NARRATIVE: CASE EVENT DATE: 20180312
